FAERS Safety Report 5758179-5 (Version None)
Quarter: 2008Q2

REPORT INFORMATION
  Report Type: 
  Country: None (occurrence: None)
  Receive Date: 20080604
  Receipt Date: 20080527
  Transmission Date: 20081010
  Serious: Yes (Disabling)
  Sender: FDA-Public Use
  Company Number: US-ELI_LILLY_AND_COMPANY-US200805005880

PATIENT
  Sex: Female
  Weight: 74.83 kg

DRUGS (5)
  1. ZYPREXA [Suspect]
     Indication: LOGORRHOEA
     Dosage: 2.5 MG, EACH EVENING
  2. ZYPREXA [Suspect]
     Dosage: 5 MG, DAILY (1/D)
     Dates: start: 20080401
  3. ZYPREXA [Suspect]
     Dosage: 5 MG, 2/D
     Dates: start: 20080101
  4. ARICEPT [Concomitant]
  5. BUSPAR [Concomitant]

REACTIONS (14)
  - ABNORMAL DREAMS [None]
  - COUGH [None]
  - DECREASED APPETITE [None]
  - DEMENTIA [None]
  - DEPRESSED MOOD [None]
  - DYSARTHRIA [None]
  - HAEMORRHOIDS [None]
  - HYPOKINESIA [None]
  - MOTOR DYSFUNCTION [None]
  - PAIN [None]
  - SCREAMING [None]
  - SNORING [None]
  - SOMNOLENCE [None]
  - WHEELCHAIR USER [None]
